FAERS Safety Report 18181213 (Version 1)
Quarter: 2020Q3

REPORT INFORMATION
  Report Type: Spontaneous
  Country: US (occurrence: US)
  Receive Date: 20200821
  Receipt Date: 20200821
  Transmission Date: 20201103
  Serious: Yes (Other)
  Sender: FDA-Public Use
  Company Number: US-JNJFOC-20200826414

PATIENT
  Age: 4 Decade
  Sex: Male
  Weight: 156.63 kg

DRUGS (3)
  1. RISPERDAL [Suspect]
     Active Substance: RISPERIDONE
     Indication: BIPOLAR DISORDER
     Route: 065
  2. RISPERDAL [Suspect]
     Active Substance: RISPERIDONE
     Route: 065
     Dates: start: 20200804
  3. RISPERDAL [Suspect]
     Active Substance: RISPERIDONE
     Route: 065
     Dates: end: 20200811

REACTIONS (3)
  - Hyperprolactinaemia [Unknown]
  - Hypoglycaemia [Unknown]
  - Metabolic syndrome [Unknown]

NARRATIVE: CASE EVENT DATE: 20200812
